FAERS Safety Report 20153281 (Version 5)
Quarter: 2022Q1

REPORT INFORMATION
  Report Type: Spontaneous
  Country: US (occurrence: US)
  Receive Date: 20211206
  Receipt Date: 20220325
  Transmission Date: 20220423
  Serious: Yes (Other)
  Sender: FDA-Public Use
  Company Number: US-PFIZER INC-202101660649

PATIENT
  Age: 69 Year
  Sex: Female

DRUGS (3)
  1. PREMARIN [Suspect]
     Active Substance: ESTROGENS, CONJUGATED
     Dosage: 1 G, MONTHLY, (ONCE MONTHLY)
     Route: 067
  2. PREMARIN [Suspect]
     Active Substance: ESTROGENS, CONJUGATED
     Dosage: 1 G, (TWICE MONTHLY)
     Route: 067
  3. PFIZER-BIONTECH COVID-19 VACCINE [Concomitant]
     Active Substance: TOZINAMERAN
     Dosage: DOSE 4 (BOOSTER), SINGLE

REACTIONS (5)
  - Liver transplant [Unknown]
  - Renal transplant [Unknown]
  - Cardiac pacemaker insertion [Unknown]
  - Off label use [Unknown]
  - Immune system disorder [Unknown]

NARRATIVE: CASE EVENT DATE: 20211101
